FAERS Safety Report 8353989-2 (Version None)
Quarter: 2012Q2

REPORT INFORMATION
  Report Type: 
  Country: None (occurrence: None)
  Receive Date: 20120511
  Receipt Date: 20120508
  Transmission Date: 20120825
  Serious: Yes (Hospitalization, Other)
  Sender: FDA-Public Use
  Company Number: US-PFIZER INC-2012113000

PATIENT

DRUGS (2)
  1. PREMPRO [Suspect]
     Dosage: 0.45/1.5, 1 DF, 1X/DAY
  2. AVAPRO [Concomitant]
     Dosage: 300 MG, UNK

REACTIONS (1)
  - INTRACRANIAL ANEURYSM [None]
